FAERS Safety Report 10237146 (Version 1)
Quarter: 2014Q1

REPORT INFORMATION
  Report Type: Spontaneous
  Country: US (occurrence: None)
  Receive Date: 20140306
  Receipt Date: 20140306
  Transmission Date: 20141002
  Serious: Yes (Other)
  Sender: FDA-Public Use
  Company Number: 163-21880-13081506

PATIENT
  Age: 61 Year
  Sex: Male
  Weight: 63.96 kg

DRUGS (8)
  1. REVLIMID (LENALIDOMIDE) (25 MILLIGRAM, CAPSULES) [Suspect]
     Indication: PLASMA CELL MYELOMA
     Route: 048
     Dates: start: 20071015, end: 20130806
  2. ZOMETA (ZOLEDRONIC ACID) (UNKNOWN) [Concomitant]
  3. CALCIUM (CALCIUM) (TABLETS) [Concomitant]
  4. CHERATUSSIN AC (CHERATUSSIN AC) (LIQUID) [Concomitant]
  5. GABAPENTIN (GABAPENTIN) (300 MILLIGRAM, CAPSULES) [Concomitant]
  6. IBUPROFEN (IBUPROFEN) (TABLETS) [Concomitant]
  7. NEURONTIN (GABAPENTIN) (CAPSULES) [Concomitant]
  8. ZOLPIDEM (AOLPIDEM) (TABLETS) [Concomitant]

REACTIONS (1)
  - Neutropenia [None]
